FAERS Safety Report 4908387-8 (Version None)
Quarter: 2006Q1

REPORT INFORMATION
  Report Type: 
  Country: None (occurrence: None)
  Receive Date: 20060210
  Receipt Date: 20060202
  Transmission Date: 20060701
  Serious: Yes (Other)
  Sender: FDA-Public Use
  Company Number: PHNU2006DE00763

PATIENT
  Age: 68 Year
  Sex: Female

DRUGS (1)
  1. ZOMETA [Suspect]
     Indication: BREAST CANCER FEMALE
     Dosage: 4 MG, QMO
     Dates: start: 20050201

REACTIONS (3)
  - PERSONALITY CHANGE [None]
  - SOMNOLENCE [None]
  - UNRESPONSIVE TO VERBAL STIMULI [None]
